FAERS Safety Report 6031929-9 (Version None)
Quarter: 2008Q4

REPORT INFORMATION
  Report Type: 
  Country: None (occurrence: None)
  Receive Date: 20081231
  Receipt Date: 20081009
  Transmission Date: 20090506
  Serious: Yes (Hospitalization, Other)
  Sender: FDA-Public Use
  Company Number: 177328USA

PATIENT
  Age: 72 Year
  Sex: Male

DRUGS (4)
  1. LAMOTRIGINE [Suspect]
     Indication: CONVULSION
     Dosage: 300 MG (150 MG, 2 IN 1 D), ORAL
     Route: 048
     Dates: start: 20080826
  2. ATORVASTATIN CALCIUM [Concomitant]
  3. VALSARTAN [Concomitant]
  4. PROPRANOLOL [Concomitant]

REACTIONS (3)
  - BLOOD SODIUM DECREASED [None]
  - GRAND MAL CONVULSION [None]
  - INTESTINAL OBSTRUCTION [None]
